FAERS Safety Report 8523563-3 (Version None)
Quarter: 2012Q3

REPORT INFORMATION
  Report Type: 
  Country: None (occurrence: None)
  Receive Date: 20120720
  Receipt Date: 20120711
  Transmission Date: 20120928
  Serious: No
  Sender: FDA-Public Use
  Company Number: US-B.I. PHARMACEUTICALS,INC./RIDGEFIELD-2012-BP-15668BP

PATIENT
  Sex: Female

DRUGS (13)
  1. CARVEDILOL [Concomitant]
     Indication: CARDIAC DISORDER
     Route: 048
  2. ADVAIR DISKUS 100/50 [Concomitant]
     Indication: DYSPNOEA
     Route: 055
  3. GABAPENTIN [Concomitant]
     Indication: ARTHRITIS
  4. ATORVASTATIN [Concomitant]
  5. ASPIRIN [Concomitant]
     Dosage: 81 MG
     Route: 048
  6. FOLIC ACID [Concomitant]
  7. HYDROCHLOROTHIAZIDE [Concomitant]
     Indication: BLOOD PRESSURE
  8. DIOVAN [Concomitant]
     Route: 048
  9. VITAMIN D [Concomitant]
  10. FOSAMAX [Concomitant]
     Indication: BONE DISORDER
     Route: 048
  11. SPIRIVA [Suspect]
     Indication: ASTHMA
     Dosage: 18 MCG
     Route: 055
     Dates: start: 19970101
  12. SPIRIVA [Suspect]
     Route: 048
     Dates: start: 20120711, end: 20120711
  13. DONEPEZIL HCL [Concomitant]
     Dosage: 10 MG
     Route: 048

REACTIONS (2)
  - NASOPHARYNGITIS [None]
  - INCORRECT ROUTE OF DRUG ADMINISTRATION [None]
